FAERS Safety Report 6511869-9 (Version None)
Quarter: 2009Q4

REPORT INFORMATION
  Report Type: 
  Country: None (occurrence: None)
  Receive Date: 20091222
  Receipt Date: 20091214
  Transmission Date: 20100525
  Serious: No
  Sender: FDA-Public Use
  Company Number: US-ELI_LILLY_AND_COMPANY-US200911003544

PATIENT
  Age: 70 Year
  Sex: Female

DRUGS (2)
  1. CYMBALTA [Suspect]
     Indication: ANXIETY
     Dosage: 30 MG, UNK
  2. ZYPREXA [Suspect]
     Indication: ANXIETY
     Dosage: 5 MG, UNK
     Dates: start: 20091101

REACTIONS (1)
  - ECCHYMOSIS [None]
